FAERS Safety Report 5827445-7 (Version None)
Quarter: 2008Q3

REPORT INFORMATION
  Report Type: 
  Country: None (occurrence: None)
  Receive Date: 20080725
  Receipt Date: 20080716
  Transmission Date: 20090109
  Serious: Yes (Hospitalization, Other)
  Sender: FDA-Public Use
  Company Number: 2008BI007312

PATIENT
  Age: 41 Year
  Sex: Male

DRUGS (2)
  1. AVONEX [Suspect]
     Indication: MULTIPLE SCLEROSIS
     Dosage: 30 UG;QW;IM; IM
     Route: 030
     Dates: start: 20070211, end: 20080301
  2. AVONEX [Suspect]
     Indication: MULTIPLE SCLEROSIS
     Dosage: 30 UG;QW;IM; IM
     Route: 030
     Dates: start: 19990101

REACTIONS (8)
  - FALL [None]
  - IATROGENIC INJURY [None]
  - INTERVERTEBRAL DISC PROTRUSION [None]
  - MUSCULAR WEAKNESS [None]
  - PARAPLEGIA [None]
  - RIB FRACTURE [None]
  - SPINAL CORD INJURY [None]
  - VISION BLURRED [None]
